FAERS Safety Report 5820011-9 (Version None)
Quarter: 2008Q3

REPORT INFORMATION
  Report Type: 
  Country: None (occurrence: None)
  Receive Date: 20080718
  Receipt Date: 20080718
  Transmission Date: 20090109
  Serious: Yes (Life-Threatening)
  Sender: FDA-Public Use
  Company Number: None

PATIENT
  Age: 58 Year
  Sex: Male
  Weight: 72.5755 kg

DRUGS (5)
  1. SUNITINIB 12.5 MG PFIZER [Suspect]
     Indication: RENAL CANCER METASTATIC
     Dosage: 37.5 MG DAILY FOR 4 WEEKS PO, CURRENT RESTARTED
     Route: 048
     Dates: start: 20060901, end: 20080717
  2. COZAAR [Concomitant]
  3. LISINOPRIL [Concomitant]
  4. SYNTHROID [Concomitant]
  5. ZANTAC [Concomitant]

REACTIONS (7)
  - ANAEMIA [None]
  - BILE DUCT STENOSIS [None]
  - FATIGUE [None]
  - HAEMOLYSIS [None]
  - HYPERTENSION [None]
  - MICROANGIOPATHY [None]
  - PATHOLOGICAL FRACTURE [None]
